FAERS Safety Report 19054852 (Version 2)
Quarter: 2021Q2

REPORT INFORMATION
  Report Type: Spontaneous
  Country: JP (occurrence: JP)
  Receive Date: 20210325
  Receipt Date: 20210521
  Transmission Date: 20210717
  Serious: Yes (Death, Other)
  Sender: FDA-Public Use
  Company Number: JP-JAZZ-2021-JP-005266

PATIENT
  Age: 51 Year
  Sex: Female
  Weight: 55.8 kg

DRUGS (1)
  1. DEFITELIO [Suspect]
     Active Substance: DEFIBROTIDE SODIUM
     Indication: VENOOCCLUSIVE LIVER DISEASE
     Dosage: 25 MILLIGRAM/KILOGRAM, QD
     Route: 042
     Dates: start: 20210219, end: 20210315

REACTIONS (3)
  - Respiratory failure [Unknown]
  - Cerebral haemorrhage [Fatal]
  - Off label use [Unknown]

NARRATIVE: CASE EVENT DATE: 2021
